FAERS Safety Report 8485947-1 (Version None)
Quarter: 2012Q3

REPORT INFORMATION
  Report Type: 
  Country: None (occurrence: None)
  Receive Date: 20120703
  Receipt Date: 20120622
  Transmission Date: 20120928
  Serious: Yes (Hospitalization, Other)
  Sender: FDA-Public Use
  Company Number: FR-BRISTOL-MYERS SQUIBB COMPANY-16706897

PATIENT
  Age: 67 Year
  Sex: Female

DRUGS (12)
  1. ENBREL [Suspect]
     Indication: RHEUMATOID ARTHRITIS
     Route: 058
     Dates: start: 20100601, end: 20101001
  2. METHOTREXATE SODIUM [Suspect]
     Indication: RHEUMATOID ARTHRITIS
     Route: 048
     Dates: start: 19980101, end: 20120401
  3. PREDNISONE TAB [Concomitant]
     Indication: RHEUMATOID ARTHRITIS
  4. PANTOPRAZOLE [Concomitant]
  5. ZOLPIDEM [Concomitant]
  6. INDAPAMIDE [Concomitant]
  7. REMICADE [Suspect]
     Indication: RHEUMATOID ARTHRITIS
     Dates: start: 20020101, end: 20100601
  8. LEVOTHYROXINE SODIUM [Concomitant]
  9. PREDNISONE [Concomitant]
  10. ORENCIA [Suspect]
     Indication: RHEUMATOID ARTHRITIS
     Dates: start: 20101115, end: 20120323
  11. FLECAINIDE ACETATE [Concomitant]
  12. PERINDOPRIL ERBUMINE [Concomitant]

REACTIONS (5)
  - RIGHT VENTRICULAR FAILURE [None]
  - CEREBROVASCULAR ACCIDENT [None]
  - LUNG DISORDER [None]
  - ACUTE MYELOID LEUKAEMIA [None]
  - ARTHROPATHY [None]
